FAERS Safety Report 10243550 (Version 4)
Quarter: 2015Q4

REPORT INFORMATION
  Report Type: Spontaneous
  Country: US (occurrence: US)
  Receive Date: 20140618
  Receipt Date: 20151030
  Transmission Date: 20160304
  Serious: Yes (Hospitalization, Other)
  Sender: FDA-Public Use
  Company Number: US-PFIZER INC-2014166240

PATIENT
  Age: 63 Year
  Sex: Female
  Weight: 93 kg

DRUGS (10)
  1. XELJANZ [Suspect]
     Active Substance: TOFACITINIB CITRATE
     Dosage: 5 MG, 2X/DAY, ONCE AT EVERY 12 HOURS
     Route: 048
     Dates: end: 201506
  2. VALTREX [Concomitant]
     Active Substance: VALACYCLOVIR HYDROCHLORIDE
     Dosage: 500 MG
  3. BIOTENE [Concomitant]
     Dosage: UNK
  4. XELJANZ [Suspect]
     Active Substance: TOFACITINIB CITRATE
     Dosage: 5 MG, 2X/DAY, ONCE AT EVERY 12 HOURS
     Dates: end: 20151010
  5. METFORMIN HYDROCHLORIDE. [Concomitant]
     Active Substance: METFORMIN HYDROCHLORIDE
     Dosage: 500 MG
  6. PREDNISONE. [Concomitant]
     Active Substance: PREDNISONE
     Dosage: 5 MG
  7. XELJANZ [Suspect]
     Active Substance: TOFACITINIB CITRATE
     Indication: OSTEOARTHRITIS
     Dosage: 5 MG, 2X/DAY, ONCE AT EVERY 12 HOURS
     Route: 048
     Dates: start: 201501
  8. XELJANZ [Suspect]
     Active Substance: TOFACITINIB CITRATE
     Dosage: 5 MG, 2X/DAY, ONCE AT EVERY 12 HOURS
     Route: 048
     Dates: start: 20150414
  9. XELJANZ [Suspect]
     Active Substance: TOFACITINIB CITRATE
     Indication: RHEUMATOID ARTHRITIS
     Dosage: 5 MG, 2X/DAY, ONCE AT EVERY 12 HOURS
     Route: 048
     Dates: start: 20140516
  10. ARAVA [Concomitant]
     Active Substance: LEFLUNOMIDE
     Dosage: 10 MG

REACTIONS (11)
  - Pain in extremity [Not Recovered/Not Resolved]
  - Pain [Unknown]
  - Large intestine polyp [Recovered/Resolved]
  - Paraesthesia oral [Not Recovered/Not Resolved]
  - Pyrexia [Unknown]
  - Squamous cell carcinoma [Unknown]
  - Tongue blistering [Not Recovered/Not Resolved]
  - Urinary tract infection [Unknown]
  - Gingival ulceration [Not Recovered/Not Resolved]
  - Cough [Unknown]
  - Sepsis [Recovered/Resolved]

NARRATIVE: CASE EVENT DATE: 20150626
